FAERS Safety Report 23369566 (Version 4)
Quarter: 2024Q4

REPORT INFORMATION
  Report Type: Report from Study
  Country: IT (occurrence: IT)
  Receive Date: 20240105
  Receipt Date: 20241223
  Transmission Date: 20250114
  Serious: Yes (Other)
  Sender: NOVARTIS
  Company Number: IT-002147023-NVSC2023IT264634

PATIENT
  Age: 2 Year
  Sex: Female
  Weight: 12.8 kg

DRUGS (5)
  1. MEKINIST [Suspect]
     Active Substance: TRAMETINIB DIMETHYL SULFOXIDE
     Indication: Noonan syndrome
     Dosage: 0.015 MG/KG/DAY
     Route: 048
     Dates: start: 20221120
  2. MEKINIST [Suspect]
     Active Substance: TRAMETINIB DIMETHYL SULFOXIDE
     Dosage: 0.015 MG/KG/DAY
     Route: 048
     Dates: start: 20231114
  3. MEKINIST [Suspect]
     Active Substance: TRAMETINIB DIMETHYL SULFOXIDE
     Dosage: 0.011 MG/KG/DAY (3 ML)
     Route: 048
  4. LASIX [Concomitant]
     Active Substance: FUROSEMIDE
     Indication: Cardiac failure
     Dosage: 5 MG, QD
     Route: 065
     Dates: start: 20221213
  5. PROPRANOLOL HYDROCHLORIDE [Concomitant]
     Active Substance: PROPRANOLOL HYDROCHLORIDE
     Indication: Cardiac failure
     Dosage: 12 MG, TID
     Route: 065
     Dates: start: 20221213

REACTIONS (3)
  - Papilloedema [Not Recovered/Not Resolved]
  - Retinal disorder [Unknown]
  - Cardiac disorder [Unknown]

NARRATIVE: CASE EVENT DATE: 20231114
